FAERS Safety Report 11180493 (Version 2)
Quarter: 2015Q3

REPORT INFORMATION
  Report Type: Spontaneous
  Country: DE (occurrence: DE)
  Receive Date: 20150611
  Receipt Date: 20150813
  Transmission Date: 20151125
  Serious: Yes (Hospitalization, Disabling)
  Sender: FDA-Public Use
  Company Number: DE-ABBVIE-15K-062-1403279-00

PATIENT
  Age: 58 Year
  Sex: Male

DRUGS (1)
  1. HUMIRA [Suspect]
     Active Substance: ADALIMUMAB
     Indication: COLITIS ULCERATIVE
     Route: 058
     Dates: start: 201412

REACTIONS (8)
  - Peripheral nerve lesion [Not Recovered/Not Resolved]
  - Joint swelling [Not Recovered/Not Resolved]
  - Blood brain barrier defect [Unknown]
  - Blood thyroid stimulating hormone increased [Unknown]
  - Arthralgia [Not Recovered/Not Resolved]
  - Pleocytosis [Unknown]
  - Sciatic nerve palsy [Not Recovered/Not Resolved]
  - Mononeuritis [Not Recovered/Not Resolved]

NARRATIVE: CASE EVENT DATE: 201412
